FAERS Safety Report 7843514-4 (Version None)
Quarter: 2011Q4

REPORT INFORMATION
  Report Type: 
  Country: None (occurrence: None)
  Receive Date: 20111025
  Receipt Date: 20111019
  Transmission Date: 20120403
  Serious: Yes (Death, Hospitalization)
  Sender: FDA-Public Use
  Company Number: AU-AMGEN-AUSSP2011039903

PATIENT
  Age: 52 Year
  Sex: Male

DRUGS (6)
  1. DOXORUBICIN HCL [Concomitant]
  2. VINCRISTINE [Concomitant]
  3. NEULASTA [Suspect]
     Indication: CHEMOTHERAPY
  4. PREDNISONE [Concomitant]
  5. CYCLOPHOSPHAMIDE [Concomitant]
  6. RITUXIMAB [Concomitant]

REACTIONS (1)
  - SEPSIS [None]
